FAERS Safety Report 6443665-5 (Version None)
Quarter: 2009Q4

REPORT INFORMATION
  Report Type: 
  Country: None (occurrence: None)
  Receive Date: 20091117
  Receipt Date: 20091105
  Transmission Date: 20100525
  Serious: Yes (Hospitalization)
  Sender: FDA-Public Use
  Company Number: PHEH2009US15316

PATIENT

DRUGS (5)
  1. DIOVAN HCT [Suspect]
     Indication: HEART RATE IRREGULAR
     Dosage: 80 MG, UNK
     Route: 048
     Dates: end: 20090201
  2. NIASPAN [Suspect]
     Indication: BLOOD CHOLESTEROL INCREASED
     Dosage: 1000 MG, QD
     Dates: start: 20080101
  3. FUROSEMIDE [Concomitant]
     Dosage: 60 MG, UNK
  4. ISOSORBIDE [Concomitant]
  5. TOPROL-XL [Concomitant]

REACTIONS (6)
  - ARRHYTHMIA [None]
  - BLOOD CHOLESTEROL INCREASED [None]
  - BLOOD CREATININE INCREASED [None]
  - BLOOD PRESSURE DECREASED [None]
  - PERICARDIAL EFFUSION [None]
  - RENAL DISORDER [None]
